FAERS Safety Report 8290374-6 (Version None)
Quarter: 2012Q2

REPORT INFORMATION
  Report Type: 
  Country: None (occurrence: None)
  Receive Date: 20120417
  Receipt Date: 20120414
  Transmission Date: 20120825
  Serious: Yes (Other)
  Sender: FDA-Public Use
  Company Number: US-PFIZER INC-2012055332

PATIENT
  Sex: Female
  Weight: 52 kg

DRUGS (12)
  1. NORVASC [Suspect]
     Dosage: UNK
     Route: 048
  2. FUROSEMIDE [Concomitant]
     Dosage: UNK
  3. NORPACE [Suspect]
     Indication: CARDIAC DISORDER
     Dosage: UNK
  4. LIPITOR [Suspect]
     Indication: CARDIAC DISORDER
     Dosage: UNK
  5. VASOTEC [Concomitant]
     Dosage: 20 MG, 2X/DAY
     Route: 048
  6. NORVASC [Suspect]
     Indication: CARDIAC DISORDER
     Dosage: UNK
  7. SYNTHROID [Concomitant]
     Dosage: UNK, 2X/DAY
     Route: 048
  8. IMDUR [Concomitant]
     Dosage: 60 MG, 2X/DAY
  9. LIPITOR [Suspect]
     Dosage: UNK
     Route: 048
  10. ZANTAC [Concomitant]
     Dosage: UNK
  11. NORPACE [Suspect]
     Dosage: UNK
     Route: 048
  12. PLAVIX [Concomitant]
     Dosage: UNK

REACTIONS (6)
  - HYPOACUSIS [None]
  - MYOCARDIAL INFARCTION [None]
  - GENERAL PHYSICAL HEALTH DETERIORATION [None]
  - SURGERY [None]
  - HEADACHE [None]
  - PAIN [None]
